FAERS Safety Report 7499365-6 (Version None)
Quarter: 2011Q2

REPORT INFORMATION
  Report Type: 
  Country: None (occurrence: None)
  Receive Date: 20110516
  Receipt Date: 20110504
  Transmission Date: 20111010
  Serious: Yes (Hospitalization)
  Sender: FDA-Public Use
  Company Number: UTC-005609

PATIENT
  Age: 46 Year
  Sex: Male

DRUGS (2)
  1. DIURETICS (DIURETICS) [Concomitant]
  2. REMODULIN [Suspect]
     Indication: PULMONARY ARTERIAL HYPERTENSION
     Dosage: 12.96 UG/KG (0.009 IG/KG, 1 IN 1 MIN), INTRAVENOUS
     Route: 042
     Dates: start: 20110315

REACTIONS (1)
  - ASCITES [None]
